FAERS Safety Report 14558706 (Version 2)
Quarter: 2018Q1

REPORT INFORMATION
  Report Type: Spontaneous
  Country: US (occurrence: US)
  Receive Date: 20180221
  Receipt Date: 20180330
  Transmission Date: 20180509
  Serious: No
  Sender: FDA-Public Use
  Company Number: US-PFIZER INC-2018072059

PATIENT
  Age: 7 Year
  Sex: Male

DRUGS (7)
  1. EXLAX [Concomitant]
     Dosage: UNK
  2. GENOTROPIN [Suspect]
     Active Substance: SOMATROPIN
     Dosage: 0.6 MG, DAILY (AT BEDTIME EACH NIGHT)
     Route: 058
     Dates: start: 2010
  3. PRAVASTATIN. [Concomitant]
     Active Substance: PRAVASTATIN
     Dosage: UNK
  4. MIRALAX [Concomitant]
     Active Substance: POLYETHYLENE GLYCOL 3350
     Dosage: UNK
  5. MVI [Concomitant]
     Active Substance: VITAMINS
     Dosage: UNK
  6. GENOTROPIN [Suspect]
     Active Substance: SOMATROPIN
     Indication: PRADER-WILLI SYNDROME
     Dosage: 0.5 MG, DAILY
     Route: 058
  7. GENOTROPIN [Suspect]
     Active Substance: SOMATROPIN
     Indication: GROWTH FAILURE
     Dosage: 0.4 MG, DAILY BEDTIME
     Route: 058

REACTIONS (5)
  - Pain in extremity [Not Recovered/Not Resolved]
  - Pain [Unknown]
  - Urine odour abnormal [Unknown]
  - Urine abnormality [Unknown]
  - Headache [Recovered/Resolved]

NARRATIVE: CASE EVENT DATE: 201612
